FAERS Safety Report 19213073 (Version 1)
Quarter: 2021Q2

REPORT INFORMATION
  Report Type: Spontaneous
  Country: IT (occurrence: IT)
  Receive Date: 20210504
  Receipt Date: 20210504
  Transmission Date: 20210717
  Serious: Yes (Other)
  Sender: FDA-Public Use
  Company Number: NVSC2021IT093950

PATIENT
  Age: 38 Year
  Sex: Female

DRUGS (7)
  1. IBUPROFEN. [Suspect]
     Active Substance: IBUPROFEN
     Indication: MIGRAINE
     Dosage: 400 MG TOTAL
     Route: 048
     Dates: start: 20210304, end: 20210304
  2. LYRICA [Concomitant]
     Active Substance: PREGABALIN
     Indication: TAKAYASU^S ARTERITIS
     Dosage: 2 DF
     Route: 048
  3. TRIATEC [Concomitant]
     Indication: TAKAYASU^S ARTERITIS
     Dosage: 1 DF
     Route: 048
  4. RIVOTRIL [Concomitant]
     Active Substance: CLONAZEPAM
     Indication: TAKAYASU^S ARTERITIS
     Dosage: UNK
     Route: 048
  5. MONTEGEN [Concomitant]
     Active Substance: MONTELUKAST SODIUM
     Indication: RHINITIS ALLERGIC
     Dosage: 1 DF
     Route: 048
  6. CARDIOASPIRIN [Concomitant]
     Active Substance: ASPIRIN
     Indication: TAKAYASU^S ARTERITIS
     Dosage: 1 DF
     Route: 048
  7. AZATHIOPRIN HEXAL [Concomitant]
     Active Substance: AZATHIOPRINE
     Indication: TAKAYASU^S ARTERITIS
     Dosage: 1 DF
     Route: 048

REACTIONS (3)
  - Pruritus [Recovered/Resolved]
  - Dyspnoea [Recovered/Resolved]
  - Face oedema [Recovered/Resolved]

NARRATIVE: CASE EVENT DATE: 20210304
